APPROVED DRUG PRODUCT: DEFERASIROX
Active Ingredient: DEFERASIROX
Strength: 125MG
Dosage Form/Route: TABLET, FOR SUSPENSION;ORAL
Application: A203560 | Product #001 | TE Code: AB
Applicant: ACTAVIS ELIZABETH LLC
Approved: Jan 26, 2016 | RLD: No | RS: No | Type: RX